FAERS Safety Report 10748017 (Version 1)
Quarter: 2015Q1

REPORT INFORMATION
  Report Type: Spontaneous
  Country: DE (occurrence: DE)
  Receive Date: 20150129
  Receipt Date: 20150129
  Transmission Date: 20150721
  Serious: Yes (Hospitalization)
  Sender: FDA-Public Use
  Company Number: DE-JNJFOC-20141118883

PATIENT
  Age: 55 Year
  Sex: Female
  Weight: 111 kg

DRUGS (11)
  1. QUILONUM [Concomitant]
     Active Substance: LITHIUM CARBONATE
     Route: 065
  2. JANUVIA [Concomitant]
     Active Substance: SITAGLIPTIN PHOSPHATE
     Route: 065
  3. SIOFOR [Concomitant]
     Active Substance: METFORMIN HYDROCHLORIDE
     Route: 065
  4. RISPERDAL [Suspect]
     Active Substance: RISPERIDONE
     Indication: SCHIZOAFFECTIVE DISORDER
     Route: 048
     Dates: start: 20141118, end: 20141205
  5. TAVOR [Concomitant]
     Active Substance: LORAZEPAM
     Route: 065
  6. PANTOZOL [Concomitant]
     Active Substance: PANTOPRAZOLE SODIUM
     Route: 065
  7. SIMVAHEXAL [Concomitant]
     Active Substance: SIMVASTATIN
     Route: 065
  8. ERGENYL CHRONO [Concomitant]
     Active Substance: VALPROIC ACID
     Route: 065
  9. RISPERDAL [Suspect]
     Active Substance: RISPERIDONE
     Indication: SCHIZOAFFECTIVE DISORDER
     Route: 048
     Dates: start: 20141106, end: 20141118
  10. RISPERDAL CONSTA [Suspect]
     Active Substance: RISPERIDONE
     Indication: SCHIZOAFFECTIVE DISORDER
     Route: 030
     Dates: start: 20141106, end: 20141106
  11. DELIX [Concomitant]
     Active Substance: RAMIPRIL
     Route: 065

REACTIONS (2)
  - Lymphoedema [Recovering/Resolving]
  - Erythema [Recovering/Resolving]

NARRATIVE: CASE EVENT DATE: 20141107
